FAERS Safety Report 7388335-4 (Version None)
Quarter: 2011Q2

REPORT INFORMATION
  Report Type: 
  Country: None (occurrence: None)
  Receive Date: 20110401
  Receipt Date: 20110328
  Transmission Date: 20111010
  Serious: Yes (Hospitalization, Other)
  Sender: FDA-Public Use
  Company Number: US-TEVA-228404USA

PATIENT
  Sex: Female

DRUGS (3)
  1. VALPROIC ACID [Concomitant]
  2. COPAXONE [Suspect]
     Indication: MULTIPLE SCLEROSIS
     Route: 058
     Dates: start: 20060101, end: 20060101
  3. HALOPERIDOL [Concomitant]

REACTIONS (1)
  - ANAPHYLACTIC REACTION [None]
